FAERS Safety Report 18276085 (Version 2)
Quarter: 2020Q3

REPORT INFORMATION
  Report Type: Report from Study
  Country: DE (occurrence: DE)
  Receive Date: 20200917
  Receipt Date: 20200922
  Transmission Date: 20201103
  Serious: Yes (Hospitalization)
  Sender: FDA-Public Use
  Company Number: DE-ROCHE-2675477

PATIENT
  Age: 84 Year
  Sex: Male
  Weight: 65.8 kg

DRUGS (2)
  1. RITUXIMAB. [Suspect]
     Active Substance: RITUXIMAB
     Indication: CHRONIC LYMPHOCYTIC LEUKAEMIA
     Dosage: RITUXIMAB I.V. (BEFORE CHEMOTHERAPY) CYCLE 1: 375 MG/M^2, D0; CYCLES 2?6: 500 MG/M^2, D1, Q28D
     Route: 042
     Dates: start: 20180917, end: 20190212
  2. BENDAMUSTINE [Suspect]
     Active Substance: BENDAMUSTINE
     Indication: CHRONIC LYMPHOCYTIC LEUKAEMIA
     Dosage: BENDAMUSTINE I.V CYCLES 1?6, 90MG/M^2, D1?2, Q28D
     Route: 042
     Dates: start: 20180917, end: 20200213

REACTIONS (2)
  - Anogenital warts [Not Recovered/Not Resolved]
  - Anogenital warts [Recovered/Resolved]

NARRATIVE: CASE EVENT DATE: 20200624
